FAERS Safety Report 6068917-2 (Version None)
Quarter: 2009Q1

REPORT INFORMATION
  Report Type: 
  Country: None (occurrence: None)
  Receive Date: 20090206
  Receipt Date: 20090202
  Transmission Date: 20090719
  Serious: Yes (Hospitalization)
  Sender: FDA-Public Use
  Company Number: DE-BAYER-200828358GPV

PATIENT
  Age: 65 Year
  Sex: Female

DRUGS (5)
  1. SORAFENIB [Suspect]
     Indication: THYROID CANCER
     Route: 065
  2. SORAFENIB [Suspect]
     Route: 065
  3. THYROXIN [Concomitant]
     Indication: HYPOTHYROIDISM
     Route: 065
  4. ATENOLOL [Concomitant]
     Indication: HYPERTENSION
     Route: 065
  5. ENALAPRIL MALEATE [Concomitant]
     Indication: HYPERTENSION
     Route: 065

REACTIONS (8)
  - DIARRHOEA [None]
  - FATIGUE [None]
  - HEPATITIS [None]
  - HYPERBILIRUBINAEMIA [None]
  - INFLUENZA LIKE ILLNESS [None]
  - PYREXIA [None]
  - RASH [None]
  - STOMATITIS [None]
